FAERS Safety Report 13741187 (Version 2)
Quarter: 2017Q3

REPORT INFORMATION
  Report Type: Report from Study
  Country: US (occurrence: US)
  Receive Date: 20170711
  Receipt Date: 20170714
  Transmission Date: 20171127
  Serious: No
  Sender: FDA-Public Use
  Company Number: US-AMGEN-USASL2017102511

PATIENT
  Age: 43 Year
  Sex: Female

DRUGS (2)
  1. ENBREL [Suspect]
     Active Substance: ETANERCEPT
     Indication: RHEUMATOID ARTHRITIS
     Dosage: 50 MG, QWK
     Route: 065
  2. XANAX [Concomitant]
     Active Substance: ALPRAZOLAM
     Indication: PANIC ATTACK

REACTIONS (10)
  - Product storage error [Unknown]
  - Pain [Unknown]
  - Injection site erythema [Unknown]
  - Depressed mood [Unknown]
  - Panic attack [Unknown]
  - Erythema [Not Recovered/Not Resolved]
  - Vaginal haemorrhage [Unknown]
  - Feeling abnormal [Unknown]
  - Injection site pain [Recovered/Resolved]
  - Arthralgia [Unknown]
